FAERS Safety Report 10192357 (Version 2)
Quarter: 2014Q2

REPORT INFORMATION
  Report Type: Report from Study
  Country: US (occurrence: US)
  Receive Date: 20140523
  Receipt Date: 20140523
  Transmission Date: 20141212
  Serious: Yes (Hospitalization)
  Sender: FDA-Public Use
  Company Number: US-ACTELION-A-US2013-88734

PATIENT
  Age: 55 Year
  Sex: Male

DRUGS (2)
  1. VELETRI [Suspect]
     Indication: PULMONARY ARTERIAL HYPERTENSION
     Dosage: 40 NG/KG, PER MIN
     Route: 042
     Dates: start: 20121023
  2. SILDENAFIL [Concomitant]

REACTIONS (8)
  - Catheter site extravasation [Unknown]
  - Device related infection [Unknown]
  - Pulmonary arterial hypertension [Unknown]
  - Catheter site infection [Unknown]
  - Erythema [Unknown]
  - Peripheral swelling [Unknown]
  - Catheter placement [Unknown]
  - Catheter site haemorrhage [Unknown]
